FAERS Safety Report 6338035-4 (Version None)
Quarter: 2009Q3

REPORT INFORMATION
  Report Type: 
  Country: None (occurrence: None)
  Receive Date: 20090902
  Receipt Date: 20090827
  Transmission Date: 20100115
  Serious: Yes (Other)
  Sender: FDA-Public Use
  Company Number: US-BAYER-200931179NA

PATIENT
  Sex: Female

DRUGS (2)
  1. AVELOX [Suspect]
     Indication: DRUG USE FOR UNKNOWN INDICATION
     Dosage: TOTAL DAILY DOSE: 400 MG  UNIT DOSE: 400 MG
     Dates: start: 20090201
  2. AVELOX [Suspect]
     Dosage: SAMPLE TABLETS 1-9 OF 10 TABLET PRESCRIPTION
     Dates: start: 20081201

REACTIONS (16)
  - ABDOMINAL PAIN [None]
  - ANAPHYLACTIC SHOCK [None]
  - ANXIETY [None]
  - ASTHENIA [None]
  - BLOOD PRESSURE DECREASED [None]
  - DIZZINESS [None]
  - GENERALISED ERYTHEMA [None]
  - HEADACHE [None]
  - HYPOAESTHESIA [None]
  - HYPOKINESIA [None]
  - NAUSEA [None]
  - PARAESTHESIA [None]
  - SENSORY LOSS [None]
  - SPEECH DISORDER [None]
  - VISUAL IMPAIRMENT [None]
  - VOMITING [None]
